FAERS Safety Report 10380378 (Version 1)
Quarter: 2014Q3

REPORT INFORMATION
  Report Type: Spontaneous
  Country: US (occurrence: None)
  Receive Date: 20140812
  Receipt Date: 20140812
  Transmission Date: 20150326
  Serious: Yes (Disabling)
  Sender: FDA-Public Use
  Company Number: None

PATIENT
  Age: 75 Year
  Sex: Female
  Weight: 53.52 kg

DRUGS (1)
  1. CIPROFLOXACIN. [Suspect]
     Active Substance: CIPROFLOXACIN
     Indication: CYSTITIS
     Dosage: 1
     Route: 048
     Dates: start: 20140524, end: 20140531

REACTIONS (9)
  - Arthralgia [None]
  - Anxiety [None]
  - Musculoskeletal discomfort [None]
  - Discomfort [None]
  - Vulvovaginal burning sensation [None]
  - Fatigue [None]
  - Restlessness [None]
  - Tendon pain [None]
  - Myalgia [None]

NARRATIVE: CASE EVENT DATE: 20140524
